FAERS Safety Report 9162671 (Version 2)
Quarter: 2013Q2

REPORT INFORMATION
  Report Type: Report from Study
  Country: US (occurrence: US)
  Receive Date: 20130314
  Receipt Date: 20130626
  Transmission Date: 20140414
  Serious: Yes (Other)
  Sender: FDA-Public Use
  Company Number: US-BRISTOL-MYERS SQUIBB COMPANY-17448028

PATIENT
  Age: 61 Year
  Sex: Female
  Weight: 95.43 kg

DRUGS (2)
  1. SPRYCEL [Suspect]
     Indication: ACUTE LYMPHOCYTIC LEUKAEMIA
     Dosage: LAST DOSE ON 11DEC2012?COURSES:3
     Route: 048
     Dates: start: 20121123
  2. DEXAMETHASONE [Suspect]
     Indication: ACUTE LYMPHOCYTIC LEUKAEMIA
     Dates: start: 20121129

REACTIONS (2)
  - Neutrophil count decreased [Unknown]
  - Blood fibrinogen decreased [Recovered/Resolved]
